FAERS Safety Report 18842510 (Version 1)
Quarter: 2021Q1

REPORT INFORMATION
  Report Type: Report from Study
  Country: US (occurrence: US)
  Receive Date: 20210204
  Receipt Date: 20210204
  Transmission Date: 20210419
  Serious: Yes (Other)
  Sender: FDA-Public Use
  Company Number: US-JNJFOC-20210142495

PATIENT
  Age: 54 Year
  Sex: Female

DRUGS (3)
  1. SPRAVATO [Suspect]
     Active Substance: ESKETAMINE
     Indication: DEPRESSION
     Dosage: 2 TOTAL DOSES
     Dates: start: 20201229, end: 20210104
  2. SPRAVATO [Suspect]
     Active Substance: ESKETAMINE
     Dates: start: 20210125, end: 20210125
  3. SPRAVATO [Suspect]
     Active Substance: ESKETAMINE
     Dosage: 2 TOTAL DOSES
     Dates: start: 20210111, end: 20210115

REACTIONS (3)
  - Dissociation [Recovered/Resolved]
  - Sedation [Recovered/Resolved]
  - Vomiting [Recovered/Resolved]

NARRATIVE: CASE EVENT DATE: 20210125
